FAERS Safety Report 6134802-0 (Version None)
Quarter: 2009Q1

REPORT INFORMATION
  Report Type: 
  Country: None (occurrence: None)
  Receive Date: 20090327
  Receipt Date: 20090317
  Transmission Date: 20090719
  Serious: Yes (Hospitalization)
  Sender: FDA-Public Use
  Company Number: PT-PFIZER INC-2009185575

PATIENT

DRUGS (2)
  1. PEGVISOMANT [Suspect]
     Indication: ACROMEGALY
     Dosage: 10 MG, 1X/DAY
     Route: 058
     Dates: start: 20090204, end: 20090304
  2. PARLODEL [Concomitant]
     Dosage: UNK
     Route: 048
     Dates: start: 19900101

REACTIONS (9)
  - ASTHENIA [None]
  - BACK PAIN [None]
  - DIZZINESS [None]
  - MUSCULOSKELETAL STIFFNESS [None]
  - MYALGIA [None]
  - OEDEMA PERIPHERAL [None]
  - SOMNOLENCE [None]
  - TONGUE OEDEMA [None]
  - VERTIGO [None]
